FAERS Safety Report 21049320 (Version 4)
Quarter: 2022Q3

REPORT INFORMATION
  Report Type: Spontaneous
  Country: US (occurrence: US)
  Receive Date: 20220706
  Receipt Date: 20220728
  Transmission Date: 20221027
  Serious: Yes (Other)
  Sender: FDA-Public Use
  Company Number: US-ORGANON-O2207USA000238

PATIENT
  Age: 23 Year
  Sex: Female
  Weight: 58.05 kg

DRUGS (3)
  1. NEXPLANON [Suspect]
     Active Substance: ETONOGESTREL
     Indication: Contraception
     Dosage: 1 IMPLANT IN LEFT ARM
     Route: 059
     Dates: start: 20220119, end: 20220504
  2. NEXPLANON [Suspect]
     Active Substance: ETONOGESTREL
     Indication: Contraception
     Dosage: 1 IMPLANT IN RIGHT ARM
     Dates: start: 202206
  3. NEXPLANON [Suspect]
     Active Substance: ETONOGESTREL
     Indication: Contraception
     Dosage: 1 IMPLANT
     Route: 059
     Dates: end: 20220119

REACTIONS (9)
  - Device dislocation [Recovered/Resolved]
  - Device dislocation [Not Recovered/Not Resolved]
  - Complication associated with device [Recovered/Resolved]
  - Complication associated with device [Recovered/Resolved]
  - Device placement issue [Recovered/Resolved]
  - Hypoaesthesia [Recovering/Resolving]
  - Device placement issue [Not Recovered/Not Resolved]
  - Device issue [Not Recovered/Not Resolved]
  - Incorrect product administration duration [Unknown]

NARRATIVE: CASE EVENT DATE: 20220119
